FAERS Safety Report 18276898 (Version 1)
Quarter: 2020Q3

REPORT INFORMATION
  Report Type: Spontaneous
  Country: US (occurrence: US)
  Receive Date: 20200917
  Receipt Date: 20200917
  Transmission Date: 20201103
  Serious: No
  Sender: FDA-Public Use
  Company Number: US-BAYER-2020-199562

PATIENT
  Age: 74 Year
  Sex: Female

DRUGS (6)
  1. TRICOR [ADENOSINE] [Concomitant]
     Active Substance: ADENOSINE
  2. VITAMIN B12 [Concomitant]
     Active Substance: CYANOCOBALAMIN
  3. ALEVE [Suspect]
     Active Substance: NAPROXEN SODIUM
     Indication: PAIN
     Dosage: 1 DF, HS
     Route: 048
  4. DILTIAZEM. [Concomitant]
     Active Substance: DILTIAZEM
  5. ZOLOFT [Concomitant]
     Active Substance: SERTRALINE HYDROCHLORIDE
  6. SYNTHROID [Concomitant]
     Active Substance: LEVOTHYROXINE SODIUM

REACTIONS (2)
  - Incorrect product administration duration [None]
  - Abdominal pain [Unknown]

NARRATIVE: CASE EVENT DATE: 2018
